FAERS Safety Report 7647978-0 (Version None)
Quarter: 2011Q3

REPORT INFORMATION
  Report Type: 
  Country: None (occurrence: None)
  Receive Date: 20110801
  Receipt Date: 20110617
  Transmission Date: 20111222
  Serious: No
  Sender: FDA-Public Use
  Company Number: US-ABBOTT-11P-163-0733552-00

PATIENT
  Sex: Female
  Weight: 62.652 kg

DRUGS (8)
  1. FOLIC ACID [Concomitant]
     Indication: ANAEMIA
  2. TRAMADOL HCL [Concomitant]
     Indication: FIBROMYALGIA
  3. BLOOD PRESSURE PILL [Concomitant]
     Indication: HYPERTENSION
  4. FIORCET [Concomitant]
     Indication: PAIN
  5. CREON [Suspect]
     Indication: MALABSORPTION
  6. XANAX [Concomitant]
     Indication: ANXIETY
  7. CREON [Suspect]
     Indication: PANCREATITIS
     Dosage: 3-4 CAPS DAILY
     Route: 048
     Dates: start: 20110501
  8. CREON [Suspect]
     Indication: COELIAC DISEASE

REACTIONS (1)
  - DIARRHOEA [None]
